FAERS Safety Report 24055663 (Version 1)
Quarter: 2024Q3

REPORT INFORMATION
  Report Type: Spontaneous
  Country: CN (occurrence: CN)
  Receive Date: 20240705
  Receipt Date: 20240705
  Transmission Date: 20241017
  Serious: Yes (Other)
  Sender: BAYER
  Company Number: CN-BAYER-2024A096432

PATIENT
  Age: 44 Year
  Sex: Male
  Weight: 53 kg

DRUGS (1)
  1. GLUCOBAY [Suspect]
     Active Substance: ACARBOSE
     Indication: Diabetes mellitus
     Dosage: 0.1 G, TID
     Route: 048
     Dates: start: 20210118, end: 20240425

REACTIONS (2)
  - Hepatic failure [Unknown]
  - High density lipoprotein increased [None]

NARRATIVE: CASE EVENT DATE: 20240425
